FAERS Safety Report 14753221 (Version 1)
Quarter: 2018Q2

REPORT INFORMATION
  Report Type: Spontaneous
  Country: US (occurrence: US)
  Receive Date: 20180412
  Receipt Date: 20180412
  Transmission Date: 20180711
  Serious: No
  Sender: FDA-Public Use
  Company Number: US-CELGENEUS-USA-20180403382

PATIENT
  Sex: Female
  Weight: 73.09 kg

DRUGS (1)
  1. REVLIMID [Suspect]
     Active Substance: LENALIDOMIDE
     Indication: PLASMA CELL MYELOMA
     Dosage: 25 MILLIGRAM
     Route: 048
     Dates: start: 20180116

REACTIONS (4)
  - Odynophagia [Unknown]
  - Neck pain [Unknown]
  - Dysphagia [Unknown]
  - Swelling [Unknown]

NARRATIVE: CASE EVENT DATE: 2018
